FAERS Safety Report 4700979-4 (Version None)
Quarter: 2005Q2

REPORT INFORMATION
  Report Type: 
  Country: None (occurrence: None)
  Receive Date: 20050628
  Receipt Date: 20050616
  Transmission Date: 20051028
  Serious: Yes (Hospitalization, Disabling)
  Sender: FDA-Public Use
  Company Number: US-JNJFOC-20050605232

PATIENT
  Sex: Female

DRUGS (2)
  1. EXTRA STRENGTH TYLENOL [Suspect]
     Dosage: ^AS DIRECTED ON PACKAGE^
  2. EXTRA STRENGTH TYLENOL [Suspect]
     Indication: MIGRAINE

REACTIONS (4)
  - HEPATIC FAILURE [None]
  - HEPATOCELLULAR DAMAGE [None]
  - LIVER DISORDER [None]
  - LIVER TRANSPLANT [None]
